FAERS Safety Report 7458068-4 (Version None)
Quarter: 2011Q2

REPORT INFORMATION
  Report Type: 
  Country: None (occurrence: None)
  Receive Date: 20110504
  Receipt Date: 20110221
  Transmission Date: 20111010
  Serious: Yes (Other)
  Sender: FDA-Public Use
  Company Number: US-SANOFI-AVENTIS-2011SA011370

PATIENT
  Age: 77 Year
  Sex: Male
  Weight: 76.2 kg

DRUGS (7)
  1. SIMVASTATIN [Concomitant]
  2. APIDRA [Suspect]
     Indication: TYPE 2 DIABETES MELLITUS
     Dosage: 2-10 UNITS PER SLIDING SCALE AT MEAL TIME DEPENDING ON BLOOD SUGAR TEST
     Route: 058
     Dates: start: 20110121
  3. ATENOLOL [Concomitant]
     Indication: BLOOD PRESSURE
  4. SOLOSTAR [Suspect]
     Indication: TYPE 2 DIABETES MELLITUS
     Dates: start: 20110121
  5. LANTUS [Suspect]
     Indication: TYPE 2 DIABETES MELLITUS
     Dosage: PER SLIDING SCALE DEPENDING ON BLOOD SUGAR
     Route: 058
  6. FINASTERIDE [Concomitant]
  7. LISINOPRIL AND HYDROCHLOROTHIAZIDE [Concomitant]
     Indication: BLOOD PRESSURE
     Dosage: 20/12.5MG

REACTIONS (3)
  - HYPOGLYCAEMIA [None]
  - PRODUCT QUALITY ISSUE [None]
  - BLOOD GLUCOSE INCREASED [None]
